FAERS Safety Report 6231839-8 (Version None)
Quarter: 2009Q2

REPORT INFORMATION
  Report Type: 
  Country: None (occurrence: None)
  Receive Date: 20090616
  Receipt Date: 20090609
  Transmission Date: 20091009
  Serious: Yes (Death, Hospitalization, Other)
  Sender: FDA-Public Use
  Company Number: US-ABBOTT-06P-163-0333742-00

PATIENT
  Sex: Female
  Weight: 65.83 kg

DRUGS (2)
  1. HUMIRA [Suspect]
     Indication: RHEUMATOID ARTHRITIS
     Route: 058
     Dates: start: 20051011, end: 20051206
  2. GLUCOSAMINE [Concomitant]
     Indication: RHEUMATOID ARTHRITIS
     Route: 048

REACTIONS (8)
  - HYPOAESTHESIA [None]
  - INFECTION [None]
  - LUNG DISORDER [None]
  - LUNG NEOPLASM MALIGNANT [None]
  - METASTASES TO CENTRAL NERVOUS SYSTEM [None]
  - PLEURAL EFFUSION [None]
  - RASH [None]
  - WHEEZING [None]
